FAERS Safety Report 6891534-9 (Version None)
Quarter: 2010Q3

REPORT INFORMATION
  Report Type: 
  Country: None (occurrence: None)
  Receive Date: 20100731
  Receipt Date: 20080407
  Transmission Date: 20110219
  Serious: No
  Sender: FDA-Public Use
  Company Number: US-PFIZER INC-2007061899

PATIENT
  Sex: Female
  Weight: 58.97 kg

DRUGS (5)
  1. AMLODIPINE [Suspect]
     Indication: HYPERTENSION
     Dates: start: 20070724
  2. AMLODIPINE [Suspect]
  3. HYDROCHLOROTHIAZIDE [Concomitant]
  4. ACETYLSALICYLIC ACID SRT [Concomitant]
  5. FISH OIL [Concomitant]

REACTIONS (1)
  - DRUG INEFFECTIVE [None]
